FAERS Safety Report 13156039 (Version 1)
Quarter: 2017Q1

REPORT INFORMATION
  Report Type: Spontaneous
  Country: US (occurrence: US)
  Receive Date: 20170126
  Receipt Date: 20170126
  Transmission Date: 20170428
  Serious: No
  Sender: FDA-Public Use
  Company Number: US-ROCHE-1468055

PATIENT
  Age: 59 Year
  Sex: Female

DRUGS (1)
  1. VALIUM [Suspect]
     Active Substance: DIAZEPAM
     Indication: CARDIOVERSION
     Dosage: IN DIVEDED DOSES
     Route: 042

REACTIONS (1)
  - Ventricular arrhythmia [Recovered/Resolved]
